FAERS Safety Report 24029650 (Version 4)
Quarter: 2024Q3

REPORT INFORMATION
  Report Type: Report from Study
  Country: NL (occurrence: NL)
  Receive Date: 20240628
  Receipt Date: 20240725
  Transmission Date: 20241017
  Serious: Yes (Hospitalization)
  Sender: ABBVIE
  Company Number: NL-ABBVIE-5818996

PATIENT
  Age: 56 Year
  Sex: Male
  Weight: 84 kg

DRUGS (4)
  1. CARBIDOPA\LEVODOPA [Suspect]
     Active Substance: CARBIDOPA\LEVODOPA
     Indication: Parkinson^s disease
     Dosage: MD: 6.5 ML: CD: 5.6ML/H, ED:3.00ML, CND: 3.1 ML/H, END: 2.50 ML
     Route: 050
     Dates: start: 20240617, end: 20240701
  2. CARBIDOPA\LEVODOPA [Suspect]
     Active Substance: CARBIDOPA\LEVODOPA
     Route: 050
     Dates: start: 20240610, end: 20240611
  3. CARBIDOPA\LEVODOPA [Suspect]
     Active Substance: CARBIDOPA\LEVODOPA
     Dosage: MD: 6.0 ML: CD: 5.3ML/H, ED:3.00ML, CND: 3.2 ML/H, END: 2.50 ML, GOES TO 24 HOURS
     Route: 050
     Dates: start: 20240611, end: 20240613
  4. CARBIDOPA\LEVODOPA [Suspect]
     Active Substance: CARBIDOPA\LEVODOPA
     Dosage: MD: 6.0 ML: CD: 5.6ML/H, ED:3.00ML, CND: 3.0 ML/H, END: 2.50 ML?DURATION: REMAINS AT 24 HOURS
     Route: 050
     Dates: start: 20240613, end: 20240617

REACTIONS (9)
  - Rehabilitation therapy [Not Recovered/Not Resolved]
  - Muscle spasms [Not Recovered/Not Resolved]
  - Device issue [Not Recovered/Not Resolved]
  - On and off phenomenon [Not Recovered/Not Resolved]
  - Wrong technique in device usage process [Not Recovered/Not Resolved]
  - Intentional product misuse [Not Recovered/Not Resolved]
  - Underdose [Unknown]
  - Obsessive-compulsive disorder [Not Recovered/Not Resolved]
  - Therapeutic product effect incomplete [Not Recovered/Not Resolved]

NARRATIVE: CASE EVENT DATE: 20240101
